FAERS Safety Report 8596394-6 (Version None)
Quarter: 2012Q3

REPORT INFORMATION
  Report Type: 
  Country: None (occurrence: None)
  Receive Date: 20120815
  Receipt Date: 20120802
  Transmission Date: 20120928
  Serious: No
  Sender: FDA-Public Use
  Company Number: US-ASTRAZENECA-2007UW27912

PATIENT
  Age: 71 Year
  Sex: Male
  Weight: 81.2 kg

DRUGS (10)
  1. NEXIUM [Suspect]
     Indication: GASTROOESOPHAGEAL REFLUX DISEASE
     Route: 048
     Dates: start: 20090101
  2. COD LIVER OIL [Concomitant]
  3. CRESTOR [Suspect]
     Indication: HYPERLIPIDAEMIA
     Route: 048
     Dates: start: 20060530
  4. CRESTOR [Suspect]
     Route: 048
     Dates: end: 20071016
  5. PRILOSEC OTC [Suspect]
     Route: 048
  6. ASPIRIN [Concomitant]
  7. CRESTOR [Suspect]
     Route: 048
  8. FISH OIL [Concomitant]
  9. LATANOPROST [Concomitant]
     Indication: GLAUCOMA
     Route: 047
     Dates: start: 20050405
  10. ASPIRIN [Concomitant]

REACTIONS (8)
  - BURNING SENSATION [None]
  - GALLBLADDER DISORDER [None]
  - THERAPEUTIC RESPONSE DECREASED [None]
  - MUSCLE SPASMS [None]
  - DRUG DOSE OMISSION [None]
  - CHOLELITHIASIS [None]
  - MYALGIA [None]
  - HYPERCHLORHYDRIA [None]
